FAERS Safety Report 9774203 (Version 2)
Quarter: 2013Q4

REPORT INFORMATION
  Report Type: Spontaneous
  Country: US (occurrence: US)
  Receive Date: 20131220
  Receipt Date: 20131220
  Transmission Date: 20140711
  Serious: No
  Sender: FDA-Public Use
  Company Number: US-GALDERMA-US13001045

PATIENT
  Sex: Male
  Weight: 86 kg

DRUGS (5)
  1. METROLOTION(METRONIDAZOLE) TOPICAL LOTION, 0.75% [Suspect]
     Indication: ROSACEA
     Route: 061
     Dates: start: 2009, end: 2009
  2. PREVACID [Concomitant]
     Indication: GASTROOESOPHAGEAL REFLUX DISEASE
     Route: 048
  3. LIPITOR [Concomitant]
     Indication: BLOOD CHOLESTEROL INCREASED
     Route: 048
     Dates: start: 200101
  4. ASPIRIN [Concomitant]
     Route: 048
     Dates: start: 200101
  5. PURPOSE SOAP [Concomitant]
     Indication: THERAPEUTIC SKIN CARE TOPICAL
     Route: 061

REACTIONS (1)
  - Seborrhoea [Recovered/Resolved]
